FAERS Safety Report 4539668-8 (Version None)
Quarter: 2004Q4

REPORT INFORMATION
  Report Type: 
  Country: None (occurrence: None)
  Receive Date: 20041223
  Receipt Date: 20041208
  Transmission Date: 20050328
  Serious: Yes (Hospitalization)
  Sender: FDA-Public Use
  Company Number: F01200403882

PATIENT
  Age: 79 Year
  Sex: Male

DRUGS (2)
  1. (OXALIPLATIN) - SOLUTION - 155.7 MG [Suspect]
     Indication: COLORECTAL CANCER METASTATIC
     Dosage: 155.7 MG Q3W (CUMULATIVE DOSE : 467.1 MG), INTRAVENOUS NOS
     Route: 042
     Dates: start: 20041105, end: 20041105
  2. (CAPECITABINE) - TABLET - 2600 MG [Suspect]
     Dosage: 1300 MG TWICE DAILY FOR 2 WEEKS, Q3W
     Route: 048
     Dates: start: 20041105, end: 20041118

REACTIONS (1)
  - GENERAL PHYSICAL HEALTH DETERIORATION [None]
